FAERS Safety Report 10220069 (Version 2)
Quarter: 2014Q2

REPORT INFORMATION
  Report Type: Report from Study
  Country: FR (occurrence: FR)
  Receive Date: 20140605
  Receipt Date: 20140605
  Transmission Date: 20141212
  Serious: Yes (Hospitalization)
  Sender: FDA-Public Use
  Company Number: FR-DSJP-DSM-2013-00931

PATIENT
  Sex: 0

DRUGS (3)
  1. ALTEISDUO [Suspect]
     Indication: HYPERTENSION
     Dosage: UNK
     Route: 048
     Dates: start: 2010, end: 20121011
  2. ALTEISDUO [Suspect]
     Dosage: UNK
     Route: 048
     Dates: start: 20121024, end: 20121115
  3. ALTEISDUO [Suspect]
     Dosage: UNK
     Route: 048
     Dates: start: 20130507, end: 20130531

REACTIONS (6)
  - Chronic gastritis [Unknown]
  - Arthralgia [Recovered/Resolved]
  - Depression [Recovered/Resolved]
  - Gastrointestinal disorder [Recovered/Resolved]
  - Decreased appetite [Recovered/Resolved]
  - Intestinal villi atrophy [Unknown]
